FAERS Safety Report 8371057-0 (Version None)
Quarter: 2012Q2

REPORT INFORMATION
  Report Type: 
  Country: None (occurrence: None)
  Receive Date: 20120518
  Receipt Date: 20111221
  Transmission Date: 20120825
  Serious: No
  Sender: FDA-Public Use
  Company Number: US-BRISTOL-MYERS SQUIBB COMPANY-15312457

PATIENT
  Age: 44 Year
  Sex: Male
  Weight: 74 kg

DRUGS (2)
  1. BARACLUDE [Suspect]
     Indication: HEPATITIS B
     Dosage: STARTED WITH 1 TABLET EVENRY MNG 2YRS AGO
  2. LIPITOR [Concomitant]
     Indication: BLOOD CHOLESTEROL INCREASED
     Dosage: 1DF=1 TABLET

REACTIONS (2)
  - PARAESTHESIA [None]
  - ERECTILE DYSFUNCTION [None]
